FAERS Safety Report 24663481 (Version 1)
Quarter: 2024Q4

REPORT INFORMATION
  Report Type: Spontaneous
  Country: GB (occurrence: GB)
  Receive Date: 20241126
  Receipt Date: 20241126
  Transmission Date: 20250115
  Serious: Yes (Other)
  Sender: ROCHE
  Company Number: GB-ROCHE-10000135038

PATIENT

DRUGS (1)
  1. KADCYLA [Suspect]
     Active Substance: ADO-TRASTUZUMAB EMTANSINE
     Indication: Breast cancer metastatic
     Route: 065

REACTIONS (4)
  - Hepatopulmonary syndrome [Unknown]
  - Nodular regenerative hyperplasia [Unknown]
  - Hepatotoxicity [Unknown]
  - Hepatic function abnormal [Unknown]
